FAERS Safety Report 5945958-4 (Version None)
Quarter: 2008Q4

REPORT INFORMATION
  Report Type: 
  Country: None (occurrence: None)
  Receive Date: 20081110
  Receipt Date: 20081030
  Transmission Date: 20090506
  Serious: Yes (Death)
  Sender: FDA-Public Use
  Company Number: RO-SANOFI-SYNTHELABO-A01200813592

PATIENT
  Age: 56 Year
  Sex: Male
  Weight: 85 kg

DRUGS (1)
  1. PLAVIX [Suspect]
     Indication: ISCHAEMIC STROKE
     Route: 048
     Dates: start: 20080701, end: 20081001

REACTIONS (3)
  - ANOREXIA [None]
  - DEATH [None]
  - DUODENAL ULCER PERFORATION [None]
